FAERS Safety Report 21084853 (Version 2)
Quarter: 2022Q3

REPORT INFORMATION
  Report Type: Other
  Country: US (occurrence: US)
  Receive Date: 20220714
  Receipt Date: 20220720
  Transmission Date: 20221027
  Serious: No
  Sender: FDA-Public Use
  Company Number: US-Covis Pharma GmbH-2022COV02113

PATIENT
  Age: 29 Year
  Sex: Female
  Weight: 105.78 kg

DRUGS (3)
  1. MAKENA [Suspect]
     Active Substance: HYDROXYPROGESTERONE CAPROATE
     Indication: Premature delivery
     Route: 058
     Dates: start: 20220630
  2. MAKENA [Suspect]
     Active Substance: HYDROXYPROGESTERONE CAPROATE
     Indication: Premature delivery
  3. MAKENA [Suspect]
     Active Substance: HYDROXYPROGESTERONE CAPROATE
     Indication: Premature delivery

REACTIONS (4)
  - Hormone level abnormal [Unknown]
  - Emotional disorder [Unknown]
  - Crying [Unknown]
  - Fatigue [Unknown]

NARRATIVE: CASE EVENT DATE: 20220707
